FAERS Safety Report 4372936-1 (Version None)
Quarter: 2004Q2

REPORT INFORMATION
  Report Type: 
  Country: None (occurrence: None)
  Receive Date: 20040608
  Receipt Date: 20040527
  Transmission Date: 20050107
  Serious: Yes (Other)
  Sender: FDA-Public Use
  Company Number: BR-BRISTOL-MYERS SQUIBB COMPANY-12599346

PATIENT
  Age: 60 Year
  Sex: Female
  Weight: 68 kg

DRUGS (2)
  1. TAXOL [Suspect]
     Indication: OVARIAN CANCER
     Dosage: THERAPY DATES: 15-AUG-2003 TO 20-NOV-2003
     Route: 042
     Dates: start: 20030815, end: 20030815
  2. PARAPLATIN [Concomitant]

REACTIONS (1)
  - PARAESTHESIA [None]
